FAERS Safety Report 8595292-1 (Version None)
Quarter: 2012Q3

REPORT INFORMATION
  Report Type: 
  Country: None (occurrence: None)
  Receive Date: 20120807
  Receipt Date: 20120807
  Transmission Date: 20120928
  Serious: Yes (Other)
  Sender: FDA-Public Use
  Company Number: None

PATIENT
  Age: 76 Year
  Sex: Female
  Weight: 52.6173 kg

DRUGS (1)
  1. LAMISIL [Suspect]
     Indication: ONYCHOMYCOSIS
     Dosage: 1 5PILL EA. DAY MOUTH
     Route: 048
     Dates: start: 20120508, end: 20120607

REACTIONS (5)
  - URTICARIA [None]
  - AUTOIMMUNE DISORDER [None]
  - RASH [None]
  - PRURITUS [None]
  - PHOTOSENSITIVITY REACTION [None]
